FAERS Safety Report 11591653 (Version 2)
Quarter: 2016Q4

REPORT INFORMATION
  Report Type: Spontaneous
  Country: DE (occurrence: DE)
  Receive Date: 20151005
  Receipt Date: 20161006
  Transmission Date: 20170206
  Serious: No
  Sender: FDA-Public Use
  Company Number: DE-NOVEN PHARMACEUTICALS, INC.-DE2015000273

PATIENT

DRUGS (3)
  1. ESTRADIOL/NORETHISTERONE ACETATE [Suspect]
     Active Substance: ESTRADIOL\NORETHINDRONE ACETATE
     Dosage: 1 DF, 1/WEEK
     Route: 062
     Dates: end: 201504
  2. ESTRADIOL/NORETHISTERONE ACETATE [Suspect]
     Active Substance: ESTRADIOL\NORETHINDRONE ACETATE
     Indication: PRODUCT USED FOR UNKNOWN INDICATION
     Dosage: 1 DF (50/250 MCG), UNKNOWN
     Route: 062
  3. ESTRADIOL/NORETHISTERONE ACETATE [Suspect]
     Active Substance: ESTRADIOL\NORETHINDRONE ACETATE
     Dosage: 0.5 DF, UNKNOWN
     Route: 062
     Dates: start: 201504, end: 201605

REACTIONS (3)
  - Weight increased [Unknown]
  - Wrong technique in product usage process [Unknown]
  - Hot flush [Unknown]

NARRATIVE: CASE EVENT DATE: 201504
